FAERS Safety Report 11180426 (Version 4)
Quarter: 2015Q3

REPORT INFORMATION
  Report Type: Spontaneous
  Country: US (occurrence: US)
  Receive Date: 20150611
  Receipt Date: 20150805
  Transmission Date: 20151125
  Serious: Yes (Hospitalization, Other)
  Sender: FDA-Public Use
  Company Number: US-PFIZER INC-2015192392

PATIENT
  Age: 61 Year
  Sex: Female
  Weight: 43 kg

DRUGS (23)
  1. FLONASE [Concomitant]
     Active Substance: FLUTICASONE PROPIONATE
     Dosage: 2 SPRAYS A DAY
  2. CYMBALTA [Concomitant]
     Active Substance: DULOXETINE HYDROCHLORIDE
     Dosage: 120 MG, 2X/DAY
  3. LYRICA [Suspect]
     Active Substance: PREGABALIN
     Indication: FIBROMYALGIA
     Dosage: 150 MG, 3X/DAY
     Route: 048
  4. NEXIUM [Concomitant]
     Active Substance: ESOMEPRAZOLE MAGNESIUM
     Dosage: 40 MG, 2X/DAY
  5. FLUTICASONE PROP [Concomitant]
     Dosage: 50 ?G, UNK
     Dates: start: 20150415
  6. AZITHROMYCIN [Concomitant]
     Active Substance: AZITHROMYCIN ANHYDROUS
     Indication: CHRONIC OBSTRUCTIVE PULMONARY DISEASE
     Dosage: 500 MG, 1X/DAY (W/FOOD)
     Route: 048
     Dates: start: 20150413
  7. MORPHINE SULFATE EXTENDED-RELEASE [Concomitant]
     Active Substance: MORPHINE SULFATE
     Dosage: 30 MG, 3X/DAY
     Route: 048
  8. FLUCONAZOLE. [Concomitant]
     Active Substance: FLUCONAZOLE
     Dosage: 150 MG, UNK
     Dates: start: 20150420
  9. OXYCONTIN [Suspect]
     Active Substance: OXYCODONE HYDROCHLORIDE
     Dosage: 80 MG, 3X/DAY
     Route: 048
     Dates: start: 2001, end: 2005
  10. ADVAIR HFA [Concomitant]
     Active Substance: FLUTICASONE PROPIONATE\SALMETEROL XINAFOATE
     Dosage: FLUTICASONE PROPIONATE 500, SALMETEROL XINAFOATE 50, 1 SPRAY IN MORNING, 1X NIGHT
  11. HYDROCO/APAP [Concomitant]
     Active Substance: ACETAMINOPHEN\HYDROCODONE
     Dosage: 10 MG, 4X/DAY
  12. OXYGEN. [Concomitant]
     Active Substance: OXYGEN
     Dosage: 2L AT NIGHT AND DAY AS NEEDED
  13. CHANTIX [Concomitant]
     Active Substance: VARENICLINE TARTRATE
     Dosage: 1
     Dates: start: 20150415
  14. DILTIAZEM [Concomitant]
     Active Substance: DILTIAZEM
     Indication: CHRONIC OBSTRUCTIVE PULMONARY DISEASE
     Dosage: 20 MG, 1X 4 HRS, AS NEEDED
  15. EXCEDRIN MIGRAINE RELIEF [Concomitant]
     Dosage: 1-2 A DAY
  16. LYRICA [Suspect]
     Active Substance: PREGABALIN
     Indication: HEART RATE INCREASED
  17. NEURONTIN [Concomitant]
     Active Substance: GABAPENTIN
     Indication: ASTHMA
     Dosage: 600 MG, 2X/DAY
  18. SINGULAIR [Concomitant]
     Active Substance: MONTELUKAST SODIUM
     Indication: HYPOGLYCAEMIA
     Dosage: 10 MG, 1X/DAY (AT NIGHT)
  19. VIVELLE DOT [Concomitant]
     Active Substance: ESTRADIOL
     Dosage: 1 DF (.05), 2X/DAY
  20. CARTIA XT [Concomitant]
     Active Substance: DILTIAZEM HYDROCHLORIDE
     Dosage: 180 MG, 1X/DAY
  21. DIGOXIN. [Concomitant]
     Active Substance: DIGOXIN
     Dosage: 0.25 MG, 1X/DAY
  22. OXYCONTIN [Suspect]
     Active Substance: OXYCODONE HYDROCHLORIDE
     Indication: NECK INJURY
     Dosage: 20MG-30MG, UNK
     Route: 048
     Dates: start: 1999, end: 2001
  23. LACTULOSE. [Concomitant]
     Active Substance: LACTULOSE
     Indication: CONSTIPATION
     Dosage: 1 DF, 1X/DAY

REACTIONS (7)
  - Pruritus [Not Recovered/Not Resolved]
  - Weight decreased [Recovered/Resolved]
  - Memory impairment [Unknown]
  - Product use issue [Unknown]
  - Sleep apnoea syndrome [Unknown]
  - Staphylococcal infection [Not Recovered/Not Resolved]
  - Pneumonia [Recovered/Resolved]

NARRATIVE: CASE EVENT DATE: 2001
